FAERS Safety Report 19901830 (Version 1)
Quarter: 2021Q3

REPORT INFORMATION
  Report Type: Spontaneous
  Country: CN (occurrence: CN)
  Receive Date: 20210929
  Receipt Date: 20210929
  Transmission Date: 20211014
  Serious: Yes (Other)
  Sender: FDA-Public Use
  Company Number: CN-BAXTER-2021BAX027702

PATIENT
  Age: 70 Year
  Sex: Male
  Weight: 80 kg

DRUGS (8)
  1. 0.9% SODIUM CHLORIDE INJECTION [Suspect]
     Active Substance: SODIUM CHLORIDE
     Indication: MEDICATION DILUTION
     Dosage: NORMAL SALINE 2 ML + CYTARABINE 50 MG
     Route: 041
     Dates: start: 20210531, end: 20210531
  2. CYTARABINE. [Suspect]
     Active Substance: CYTARABINE
     Dosage: DAY 1 TO DAY3
     Route: 041
     Dates: start: 20210601, end: 20210603
  3. METHOTREXATE. [Suspect]
     Active Substance: METHOTREXATE
     Indication: ACUTE LYMPHOCYTIC LEUKAEMIA
     Dosage: DEXAMETHASONE 10 MG + METHOTREXATE 10 MG
     Route: 037
     Dates: start: 20210531, end: 20210531
  4. MERCAPTOPURINE. [Suspect]
     Active Substance: MERCAPTOPURINE
     Indication: ACUTE LYMPHOCYTIC LEUKAEMIA
     Dosage: DAY 1 TO DAY 8
     Route: 048
     Dates: start: 20210601, end: 20210608
  5. ENDOXAN [Suspect]
     Active Substance: CYCLOPHOSPHAMIDE
     Indication: ACUTE LYMPHOCYTIC LEUKAEMIA
     Dosage: DAY1 DAY8
     Route: 041
     Dates: start: 20210601, end: 20210608
  6. CYTARABINE. [Suspect]
     Active Substance: CYTARABINE
     Indication: ACUTE LYMPHOCYTIC LEUKAEMIA
     Dosage: NORMAL SALINE 2 ML + CYTARABINE 50 MG
     Route: 037
     Dates: start: 20210531, end: 20210531
  7. CYTARABINE. [Suspect]
     Active Substance: CYTARABINE
     Dosage: DAY 8 TO DAY10
     Route: 041
     Dates: start: 20210608, end: 20210610
  8. DEXAMETHASONE. [Suspect]
     Active Substance: DEXAMETHASONE
     Indication: ACUTE LYMPHOCYTIC LEUKAEMIA
     Dosage: DEXAMETHASONE 10 MG + METHOTREXATE 10 MG
     Route: 037
     Dates: start: 20210531, end: 20210531

REACTIONS (1)
  - Drug-induced liver injury [Recovering/Resolving]

NARRATIVE: CASE EVENT DATE: 20210605
